FAERS Safety Report 5309588-X (Version None)
Quarter: 2007Q2

REPORT INFORMATION
  Report Type: 
  Country: None (occurrence: None)
  Receive Date: 20070425
  Receipt Date: 20070425
  Transmission Date: 20071010
  Serious: Yes (Other)
  Sender: FDA-Public Use
  Company Number: None

PATIENT
  Sex: Female
  Weight: 62.5964 kg

DRUGS (2)
  1. FENTANYL [Suspect]
     Indication: BACK INJURY
     Dosage: 75 MCG/HR Q 72H TRANSDERMAL
     Route: 062
     Dates: start: 20070419, end: 20070424
  2. FENTANYL [Suspect]
     Indication: BACK PAIN
     Dosage: 75 MCG/HR Q 72H TRANSDERMAL
     Route: 062
     Dates: start: 20070419, end: 20070424

REACTIONS (2)
  - PHARMACEUTICAL PRODUCT COMPLAINT [None]
  - RASH PRURITIC [None]
